FAERS Safety Report 23735990 (Version 1)
Quarter: 2024Q2

REPORT INFORMATION
  Report Type: Spontaneous
  Country: US (occurrence: None)
  Receive Date: 20240411
  Receipt Date: 20240411
  Transmission Date: 20240715
  Serious: No
  Sender: FDA-Public Use
  Company Number: None

PATIENT
  Age: 79 Year
  Sex: Male
  Weight: 76.95 kg

DRUGS (2)
  1. DEXAMETHASONE [Suspect]
     Active Substance: DEXAMETHASONE
  2. DIAZEPAM [Suspect]
     Active Substance: DIAZEPAM

REACTIONS (4)
  - Product packaging confusion [None]
  - Product dispensing error [None]
  - Wrong product administered [None]
  - Accidental overdose [None]

NARRATIVE: CASE EVENT DATE: 20240330
